FAERS Safety Report 10155548 (Version 6)
Quarter: 2014Q4

REPORT INFORMATION
  Report Type: Report from Study
  Country: CL (occurrence: CL)
  Receive Date: 20140506
  Receipt Date: 20141109
  Transmission Date: 20150528
  Serious: Yes (Hospitalization)
  Sender: FDA-Public Use
  Company Number: CL-BRISTOL-MYERS SQUIBB COMPANY-19398411

PATIENT
  Age: 63 Year
  Sex: Female

DRUGS (6)
  1. ZODOL [Concomitant]
  2. PREDNISONE. [Concomitant]
     Active Substance: PREDNISONE
  3. LOSAPREX [Concomitant]
     Active Substance: LOSARTAN POTASSIUM
  4. ATORVASTATIN [Concomitant]
     Active Substance: ATORVASTATIN
  5. CYCLOBENZAPRINE [Concomitant]
     Active Substance: CYCLOBENZAPRINE
  6. ORENCIA [Suspect]
     Active Substance: ABATACEPT
     Indication: PSORIATIC ARTHROPATHY
     Dosage: 1 UNIT?INTERRUPTED ON 15MAR2014, 31MAR2014
     Route: 058
     Dates: start: 20130812

REACTIONS (7)
  - Tonsillitis [Recovering/Resolving]
  - Hernia [Unknown]
  - Arthropathy [Recovering/Resolving]
  - Swelling [Not Recovered/Not Resolved]
  - Musculoskeletal pain [Not Recovered/Not Resolved]
  - Nasopharyngitis [Recovering/Resolving]
  - Off label use [Unknown]

NARRATIVE: CASE EVENT DATE: 20130913
